FAERS Safety Report 6471575-6 (Version None)
Quarter: 2009Q4

REPORT INFORMATION
  Report Type: 
  Country: None (occurrence: None)
  Receive Date: 20091203
  Receipt Date: 20091126
  Transmission Date: 20100525
  Serious: Yes (Other)
  Sender: FDA-Public Use
  Company Number: GB-TEVA-216280ISR

PATIENT
  Age: 60 Year
  Sex: Male

DRUGS (3)
  1. CISPLATIN [Suspect]
     Indication: LUNG NEOPLASM MALIGNANT
  2. VINORELBINE TARTRATE [Suspect]
     Indication: LUNG NEOPLASM MALIGNANT
     Route: 042
  3. VINORELBINE TARTRATE [Suspect]
     Route: 048

REACTIONS (3)
  - ILEUS PARALYTIC [None]
  - UPPER RESPIRATORY TRACT INFECTION [None]
  - VOMITING [None]
